FAERS Safety Report 7563372-5 (Version None)
Quarter: 2011Q2

REPORT INFORMATION
  Report Type: 
  Country: None (occurrence: None)
  Receive Date: 20110622
  Receipt Date: 20110614
  Transmission Date: 20111010
  Serious: Yes (Death)
  Sender: FDA-Public Use
  Company Number: A0931482A

PATIENT
  Age: 46 Year
  Sex: Male

DRUGS (2)
  1. UNSPECIFIED MEDICATION [Suspect]
  2. AVANDIA [Suspect]
     Route: 048

REACTIONS (2)
  - TREATMENT NONCOMPLIANCE [None]
  - OVERDOSE [None]
